FAERS Safety Report 20208615 (Version 1)
Quarter: 2022Q1

REPORT INFORMATION
  Report Type: Spontaneous
  Country: None (occurrence: US)
  Receive Date: 20211220
  Receipt Date: 20211220
  Transmission Date: 20220424
  Serious: No
  Sender: FDA-Public Use
  Company Number: US-Matrixx Initiatives, Inc.-2123205

PATIENT
  Age: 19 Year
  Sex: Female
  Weight: 81.818 kg

DRUGS (1)
  1. HOMEOPATHICS [Suspect]
     Active Substance: HOMEOPATHICS
     Indication: Nasopharyngitis
     Route: 045

REACTIONS (3)
  - Anosmia [None]
  - Rhinalgia [None]
  - Dysgeusia [None]
